FAERS Safety Report 26051696 (Version 1)
Quarter: 2025Q4

REPORT INFORMATION
  Report Type: Spontaneous
  Country: AU (occurrence: AU)
  Receive Date: 20251117
  Receipt Date: 20251117
  Transmission Date: 20260118
  Serious: Yes (Death)
  Sender: GENMAB
  Company Number: AU-ABBVIE-6550480

PATIENT
  Age: 93 Year
  Sex: Male

DRUGS (1)
  1. EPCORITAMAB [Suspect]
     Active Substance: EPCORITAMAB
     Indication: Product used for unknown indication
     Dosage: 48 MILLIGRAM
     Route: 058

REACTIONS (2)
  - Death [Fatal]
  - Cytokine release syndrome [Unknown]

NARRATIVE: CASE EVENT DATE: 20251112
